FAERS Safety Report 9611092 (Version 1)
Quarter: 2013Q4

REPORT INFORMATION
  Report Type: Spontaneous
  Country: None (occurrence: US)
  Receive Date: 20131009
  Receipt Date: 20131009
  Transmission Date: 20140711
  Serious: No
  Sender: FDA-Public Use
  Company Number: US-SAVIENT-2013S1000094

PATIENT
  Age: 30 Year
  Sex: Male
  Weight: 128.03 kg

DRUGS (8)
  1. KRYSTEXXA [Suspect]
     Indication: GOUT
     Route: 042
     Dates: start: 20130724, end: 20130724
  2. KRYSTEXXA [Suspect]
     Route: 042
     Dates: start: 20130816, end: 20130816
  3. KRYSTEXXA [Suspect]
     Route: 042
     Dates: start: 20130829
  4. ALLOPURINOL [Concomitant]
     Indication: GOUT
     Route: 048
  5. PRAVASTATIN [Concomitant]
     Indication: HYPERTENSION
  6. ACETAMINOPHEN [Concomitant]
     Indication: ALLERGY PROPHYLAXIS
     Route: 048
     Dates: start: 20130724
  7. DIPHENHYDRAMINE [Concomitant]
     Indication: ALLERGY PROPHYLAXIS
     Route: 042
     Dates: start: 20130724
  8. METHYLPREDNISOLONE [Concomitant]
     Indication: ALLERGY PROPHYLAXIS
     Route: 042
     Dates: start: 20130724

REACTIONS (3)
  - Blood pressure increased [Recovered/Resolved]
  - Chest pain [Unknown]
  - Therapeutic response decreased [Unknown]
